FAERS Safety Report 4305674-1 (Version None)
Quarter: 2004Q1

REPORT INFORMATION
  Report Type: 
  Country: None (occurrence: None)
  Receive Date: 20040226
  Receipt Date: 20040107
  Transmission Date: 20041129
  Serious: No
  Sender: FDA-Public Use
  Company Number: US-BRISTOL-MYERS SQUIBB COMPANY-12472924

PATIENT
  Sex: Female

DRUGS (1)
  1. ABILIFY [Suspect]
     Indication: MENTAL DISORDER
     Dosage: STOPPED IN NOV-2003; RESUMED IN DEC-2003; DISCONTINUED BETWEEN 15-DEC-2003 AND 07-JAN-2003.
     Route: 048
     Dates: start: 20031001

REACTIONS (1)
  - CONTUSION [None]
